FAERS Safety Report 18577928 (Version 2)
Quarter: 2024Q1

REPORT INFORMATION
  Report Type: Spontaneous
  Country: US (occurrence: None)
  Receive Date: 20201204
  Receipt Date: 20240313
  Transmission Date: 20240410
  Serious: Yes (Other)
  Sender: FDA-Public Use
  Company Number: US-ROCHE-2720349

PATIENT
  Age: 56 Year
  Sex: Female

DRUGS (5)
  1. ALECENSA [Suspect]
     Active Substance: ALECTINIB HYDROCHLORIDE
     Indication: Lung neoplasm malignant
     Dosage: ONGOING: YES
     Route: 048
  2. ALECENSA [Suspect]
     Active Substance: ALECTINIB HYDROCHLORIDE
     Route: 048
  3. VENCLEXTA [Suspect]
     Active Substance: VENETOCLAX
     Indication: Product used for unknown indication
     Route: 065
  4. GABAPENTIN [Concomitant]
     Active Substance: GABAPENTIN
     Indication: Back pain
  5. BACLOFEN [Concomitant]
     Active Substance: BACLOFEN

REACTIONS (7)
  - Fatigue [Unknown]
  - Swelling [Unknown]
  - Skin wrinkling [Unknown]
  - Central nervous system neoplasm [Unknown]
  - Initial insomnia [Unknown]
  - Limb discomfort [Unknown]
  - Pain [Unknown]

NARRATIVE: CASE EVENT DATE: 20201008
